FAERS Safety Report 13926475 (Version 1)
Quarter: 2017Q3

REPORT INFORMATION
  Report Type: Spontaneous
  Country: US (occurrence: None)
  Receive Date: 20170831
  Receipt Date: 20170831
  Transmission Date: 20171127
  Serious: Yes (Death, Hospitalization)
  Sender: FDA-Public Use
  Company Number: None

PATIENT
  Age: 16 Year
  Sex: Male
  Weight: 49.8 kg

DRUGS (4)
  1. CYTARABINE. [Suspect]
     Active Substance: CYTARABINE
     Dates: end: 20151009
  2. ONCASPAR [Suspect]
     Active Substance: PEGASPARGASE
     Dates: end: 20151009
  3. VINCRISTINE SULFATE. [Suspect]
     Active Substance: VINCRISTINE SULFATE
     Dates: end: 20151001
  4. DEXAMETHASONE. [Suspect]
     Active Substance: DEXAMETHASONE
     Dates: end: 20151005

REACTIONS (12)
  - Hypotension [None]
  - Vomiting [None]
  - Central nervous system leukaemia [None]
  - Respiratory arrest [None]
  - Vertigo [None]
  - Respiratory rate decreased [None]
  - Dehydration [None]
  - Toxicity to various agents [None]
  - Nausea [None]
  - Bradycardia [None]
  - Cardiac arrest [None]
  - Headache [None]

NARRATIVE: CASE EVENT DATE: 20161001
